FAERS Safety Report 12941199 (Version 1)
Quarter: 2016Q4

REPORT INFORMATION
  Report Type: Spontaneous
  Country: US (occurrence: US)
  Receive Date: 20161115
  Receipt Date: 20161115
  Transmission Date: 20170207
  Serious: Yes (Hospitalization)
  Sender: FDA-Public Use
  Company Number: None

PATIENT
  Age: 49 Year
  Sex: Male
  Weight: 78.5 kg

DRUGS (13)
  1. AMLODIPINE [Concomitant]
     Active Substance: AMLODIPINE BESYLATE
  2. ZESTRIL [Concomitant]
     Active Substance: LISINOPRIL
  3. MAG OX [Concomitant]
     Active Substance: MAGNESIUM OXIDE
  4. NEURONTIN [Concomitant]
     Active Substance: GABAPENTIN
  5. ZANTAC [Concomitant]
     Active Substance: RANITIDINE HYDROCHLORIDE
  6. NOVOLOG [Concomitant]
     Active Substance: INSULIN ASPART
     Dosage: NOVOLOG - 6 UNITS - SUBCUTANEOUSLY - TID - DATES OF USE - CHRONIC
     Route: 058
  7. LANTUS [Suspect]
     Active Substance: INSULIN GLARGINE
     Indication: DIABETES MELLITUS
     Dosage: LANTUS - 25 UNITS - NIGHTLY - SUBCUTANEOUSLY - DATES OF USE - CHRONIC
     Route: 058
  8. ASA [Concomitant]
     Active Substance: ASPIRIN
  9. LOPRESSOR [Concomitant]
     Active Substance: METOPROLOL TARTRATE
  10. LIPITOR [Concomitant]
     Active Substance: ATORVASTATIN CALCIUM
  11. ZOLOFT [Concomitant]
     Active Substance: SERTRALINE HYDROCHLORIDE
  12. THIAMINE. [Concomitant]
     Active Substance: THIAMINE
  13. TRAZODONE [Concomitant]
     Active Substance: TRAZODONE HYDROCHLORIDE

REACTIONS (3)
  - Hypoglycaemia [None]
  - Anaemia [None]
  - Hypophagia [None]

NARRATIVE: CASE EVENT DATE: 20151209
